FAERS Safety Report 5975242-4 (Version None)
Quarter: 2008Q4

REPORT INFORMATION
  Report Type: 
  Country: None (occurrence: None)
  Receive Date: 20081202
  Receipt Date: 20081124
  Transmission Date: 20090506
  Serious: Yes (Other)
  Sender: FDA-Public Use
  Company Number: US-ASTRAZENECA-2008UW26289

PATIENT
  Age: 71 Year
  Sex: Male
  Weight: 97.5 kg

DRUGS (4)
  1. CRESTOR [Suspect]
     Route: 048
     Dates: start: 20081121
  2. CARDURA [Concomitant]
  3. AVODART [Concomitant]
  4. TRAZODONE HCL [Concomitant]

REACTIONS (2)
  - DYSURIA [None]
  - PROSTATOMEGALY [None]
